FAERS Safety Report 9204842 (Version 1)
Quarter: 2013Q2

REPORT INFORMATION
  Report Type: Spontaneous
  Country: US (occurrence: None)
  Receive Date: 20130401
  Receipt Date: 20130401
  Transmission Date: 20140414
  Serious: No
  Sender: FDA-Public Use
  Company Number: None

PATIENT
  Age: 66 Year
  Sex: Male
  Weight: 119.1 kg

DRUGS (1)
  1. HALOPERIDOL [Suspect]

REACTIONS (1)
  - Neuroleptic malignant syndrome [None]
